FAERS Safety Report 14920584 (Version 1)
Quarter: 2018Q2

REPORT INFORMATION
  Report Type: Spontaneous
  Country: JP (occurrence: JP)
  Receive Date: 20180521
  Receipt Date: 20180521
  Transmission Date: 20180711
  Serious: Yes (Death, Hospitalization, Other)
  Sender: FDA-Public Use
  Company Number: JP-SHIRE-JP201818917AA

PATIENT
  Age: 70 Year
  Sex: Female

DRUGS (2)
  1. CYCLOPHOSPHAMIDE. [Concomitant]
     Active Substance: CYCLOPHOSPHAMIDE
     Indication: ESSENTIAL THROMBOCYTHAEMIA
     Dosage: UNK
     Route: 065
  2. AGRYLIN [Suspect]
     Active Substance: ANAGRELIDE HYDROCHLORIDE
     Indication: ESSENTIAL THROMBOCYTHAEMIA
     Dosage: UNK
     Route: 065

REACTIONS (14)
  - Dyspnoea exertional [Recovering/Resolving]
  - Bone pain [Unknown]
  - Depressed level of consciousness [Not Recovered/Not Resolved]
  - Headache [Unknown]
  - Disorientation [Unknown]
  - Somnolence [Unknown]
  - Nausea [Unknown]
  - Granuloma [Not Recovered/Not Resolved]
  - Lymphoma [Fatal]
  - Disseminated cryptococcosis [Fatal]
  - Pyrexia [Unknown]
  - Oedema peripheral [Recovering/Resolving]
  - Cardiac failure chronic [Recovering/Resolving]
  - Erythema [Unknown]
